FAERS Safety Report 6287496-8 (Version None)
Quarter: 2009Q3

REPORT INFORMATION
  Report Type: 
  Country: None (occurrence: None)
  Receive Date: 20090727
  Receipt Date: 20090716
  Transmission Date: 20100115
  Serious: Yes (Death, Hospitalization)
  Sender: FDA-Public Use
  Company Number: US-JNJFOC-20090609185

PATIENT
  Age: 64 Year
  Sex: Female
  Weight: 65 kg

DRUGS (1)
  1. DACOGEN [Suspect]
     Indication: REFRACTORY ANAEMIA
     Dosage: CYCLE #1 INTRAVENOUS; CYCLE #2
     Route: 042
     Dates: end: 20090601

REACTIONS (5)
  - CEREBRAL INFARCTION [None]
  - INTESTINAL INFARCTION [None]
  - RENAL INFARCT [None]
  - SPLENIC INFARCTION [None]
  - THROMBOTIC THROMBOCYTOPENIC PURPURA [None]
